FAERS Safety Report 8172424-0 (Version None)
Quarter: 2012Q1

REPORT INFORMATION
  Report Type: 
  Country: None (occurrence: None)
  Receive Date: 20120224
  Receipt Date: 20120224
  Transmission Date: 20120608
  Serious: Yes (Death)
  Sender: FDA-Public Use
  Company Number: None

PATIENT
  Age: 76 Year
  Sex: Female

DRUGS (14)
  1. IPRATROPIUM BROMIDE [Concomitant]
  2. DIGOXIN [Concomitant]
  3. FUROSEMIDE [Concomitant]
  4. LETAIRIS [Suspect]
     Indication: PULMONARY HYPERTENSION
     Dosage: 10 MG DAILY BY MOUTH
     Route: 048
     Dates: start: 20091201, end: 20120101
  5. CHOLECALCIFEROL [Concomitant]
  6. AMIODARONE HCL [Concomitant]
  7. POTASSIUM CHLORIDE [Concomitant]
  8. HYDROXYCHLOROQUINE SULFATE [Concomitant]
  9. PRAVASTATIN [Concomitant]
  10. OMEPRAZOLE [Concomitant]
  11. MOMETASONE FUROATE [Concomitant]
  12. FERROUS SULFATE TAB [Concomitant]
  13. ALBUTEROL [Concomitant]
  14. FLUTICASONE PROPIONATE [Concomitant]

REACTIONS (1)
  - COLON CANCER [None]
